FAERS Safety Report 14016995 (Version 2)
Quarter: 2017Q4

REPORT INFORMATION
  Report Type: Spontaneous
  Country: ES (occurrence: ES)
  Receive Date: 20170927
  Receipt Date: 20171106
  Transmission Date: 20180321
  Serious: No
  Sender: FDA-Public Use
  Company Number: ES-ELI_LILLY_AND_COMPANY-ES201707005480

PATIENT
  Age: 60 Year
  Sex: Male

DRUGS (1)
  1. TALTZ [Suspect]
     Active Substance: IXEKIZUMAB
     Indication: PSORIASIS
     Dosage: 80 MG, TWICE AT WEEK 0 AND ONCE AT WEEK TWO
     Route: 065
     Dates: start: 20170606

REACTIONS (2)
  - Drug hypersensitivity [Recovered/Resolved]
  - Psoriasis [Recovered/Resolved]
